FAERS Safety Report 8992792 (Version 1)
Quarter: 2013Q1

REPORT INFORMATION
  Report Type: Spontaneous
  Country: JP (occurrence: JP)
  Receive Date: 20130102
  Receipt Date: 20130102
  Transmission Date: 20140127
  Serious: Yes (Death, Other)
  Sender: FDA-Public Use
  Company Number: JP-009507513-1212JPN011096

PATIENT
  Sex: 0

DRUGS (1)
  1. NU-LOTAN TABLET 50 [Suspect]
     Indication: SUICIDE ATTEMPT
     Route: 048

REACTIONS (3)
  - Cardiac arrest [Fatal]
  - Suicide attempt [Unknown]
  - Overdose [Unknown]
